FAERS Safety Report 25187683 (Version 1)
Quarter: 2025Q2

REPORT INFORMATION
  Report Type: Report from Study
  Country: IT (occurrence: IT)
  Receive Date: 20250411
  Receipt Date: 20250411
  Transmission Date: 20250717
  Serious: Yes (Other)
  Sender: TEVA
  Company Number: None

PATIENT
  Age: 81 Year
  Sex: Female

DRUGS (9)
  1. PACLITAXEL [Suspect]
     Active Substance: PACLITAXEL
     Indication: HER2 positive breast cancer
     Dosage: THE PATIENT HAS UNDERGONE TREATMENT TWICE BATCH OF THE DRUG ADMINISTERED
     Route: 042
     Dates: start: 20250226, end: 20250226
  2. PACLITAXEL [Suspect]
     Active Substance: PACLITAXEL
     Indication: HER2 positive breast cancer
     Dosage: THE PATIENT HAS UNDERGONE TREATMENT TWICE BATCH OF THE DRUG ADMINISTERED
     Route: 042
     Dates: start: 20250219, end: 20250226
  3. YOVIS [Concomitant]
     Indication: Product used for unknown indication
     Route: 065
  4. METOCLOPRAMIDE HYDROCHLORIDE [Concomitant]
     Active Substance: METOCLOPRAMIDE HYDROCHLORIDE
     Indication: Product used for unknown indication
     Route: 065
  5. CONNETTIVINA [Concomitant]
     Indication: Product used for unknown indication
     Route: 065
  6. LOPERAMIDE HYDROCHLORIDE [Concomitant]
     Active Substance: LOPERAMIDE HYDROCHLORIDE
     Indication: Product used for unknown indication
     Route: 065
  7. TRAZIMERA [Suspect]
     Active Substance: TRASTUZUMAB-QYYP
     Indication: HER2 positive breast cancer
     Dosage: FOR THE PREPARATION USED 2 BOTTLES OF PHARMA
     Route: 042
     Dates: start: 20250219
  8. TRAZIMERA [Suspect]
     Active Substance: TRASTUZUMAB-QYYP
     Indication: HER2 positive breast cancer
     Dosage: FOR THE PREPARATION USED 2 BOTTLES OF PHARMA
     Route: 042
     Dates: start: 20250219
  9. PERJETA [Suspect]
     Active Substance: PERTUZUMAB
     Indication: HER2 positive breast cancer
     Dosage: THRICE-WEEKLY ADMINISTRATION DOSAGE 840 MG
     Route: 042
     Dates: start: 20250219

REACTIONS (4)
  - Neutropenia [Recovered/Resolved]
  - Myalgia [Recovering/Resolving]
  - Skin discolouration [Recovering/Resolving]
  - Diarrhoea [Recovering/Resolving]

NARRATIVE: CASE EVENT DATE: 20250224
